FAERS Safety Report 4661859-6 (Version None)
Quarter: 2005Q2

REPORT INFORMATION
  Report Type: 
  Country: None (occurrence: None)
  Receive Date: 20050513
  Receipt Date: 20050407
  Transmission Date: 20051028
  Serious: Yes (Hospitalization)
  Sender: FDA-Public Use
  Company Number: SE-AMGEN-UK125916

PATIENT
  Sex: Female

DRUGS (16)
  1. NEUPOGEN [Suspect]
     Indication: CHEMOTHERAPY
     Route: 065
     Dates: start: 20050329, end: 20050405
  2. LANSOPRAZOLE [Concomitant]
     Route: 048
  3. MOVICOL [Concomitant]
     Route: 065
  4. ETOPOSIDE [Concomitant]
     Route: 065
  5. METHOTREXATE [Concomitant]
     Route: 065
  6. ACETAMINOPHEN [Concomitant]
     Route: 048
  7. PREDNISOLONE [Concomitant]
     Route: 048
  8. CHLOROQUINE PHOSPHATE [Concomitant]
     Route: 048
  9. MYCOSTATIN [Concomitant]
     Route: 048
  10. MORFIN [Concomitant]
     Route: 048
  11. HOLOXAN [Concomitant]
     Route: 065
  12. DOLCONTIN [Concomitant]
     Route: 048
  13. STILNOCT [Concomitant]
     Route: 048
  14. SODIUM PICOSULFATE [Concomitant]
     Route: 048
  15. MITOGUAZONE [Concomitant]
     Route: 065
  16. MESNA [Concomitant]
     Route: 065

REACTIONS (3)
  - ANAEMIA [None]
  - MUSCULOSKELETAL PAIN [None]
  - VASCULITIS [None]
